FAERS Safety Report 7480527-9 (Version None)
Quarter: 2011Q2

REPORT INFORMATION
  Report Type: 
  Country: None (occurrence: None)
  Receive Date: 20110516
  Receipt Date: 20090217
  Transmission Date: 20111010
  Serious: No
  Sender: FDA-Public Use
  Company Number: 2009BI005183

PATIENT
  Sex: Female

DRUGS (1)
  1. TYSABRI [Suspect]
     Indication: MULTIPLE SCLEROSIS
     Route: 042
     Dates: start: 20081118, end: 20090422

REACTIONS (8)
  - GASTROINTESTINAL DISORDER [None]
  - NAUSEA [None]
  - MUSCLE SPASMS [None]
  - WEIGHT DECREASED [None]
  - VOMITING [None]
  - FATIGUE [None]
  - DECREASED APPETITE [None]
  - ABDOMINAL PAIN UPPER [None]
